FAERS Safety Report 8265437-1 (Version None)
Quarter: 2012Q2

REPORT INFORMATION
  Report Type: 
  Country: None (occurrence: None)
  Receive Date: 20120406
  Receipt Date: 20120403
  Transmission Date: 20120825
  Serious: Yes (Other)
  Sender: FDA-Public Use
  Company Number: DE-PFIZER INC-2012084588

PATIENT

DRUGS (1)
  1. TORISEL [Suspect]
     Indication: METASTATIC RENAL CELL CARCINOMA
     Dosage: FOUR ADMINISTRATIONS OVER 4 WEEKS

REACTIONS (2)
  - URINARY RETENTION [None]
  - DYSURIA [None]
